FAERS Safety Report 12311685 (Version 2)
Quarter: 2016Q2

REPORT INFORMATION
  Report Type: Spontaneous
  Country: US (occurrence: US)
  Receive Date: 20160427
  Receipt Date: 20160506
  Transmission Date: 20160815
  Serious: No
  Sender: FDA-Public Use
  Company Number: US-BAYER-2016-076928

PATIENT
  Age: 54 Year
  Sex: Female
  Weight: 111.11 kg

DRUGS (1)
  1. ALEVE [Suspect]
     Active Substance: NAPROXEN SODIUM
     Indication: ARTHRITIS
     Dosage: 2 DF, QD 1 EVERY MORNING AND 1 EVERY NIGHT.

REACTIONS (7)
  - Arthralgia [Recovered/Resolved]
  - Product use issue [None]
  - Product use issue [Unknown]
  - Pain [Unknown]
  - Medical device discomfort [Unknown]
  - Pain in extremity [Recovered/Resolved]
  - Off label use [None]

NARRATIVE: CASE EVENT DATE: 2016
